FAERS Safety Report 9148312 (Version 2)
Quarter: 2013Q1

REPORT INFORMATION
  Report Type: Spontaneous
  Country: US (occurrence: None)
  Receive Date: 20130220
  Receipt Date: 20130308
  Transmission Date: 20140127
  Serious: Yes (Death)
  Sender: FDA-Public Use
  Company Number: UTC-029186

PATIENT
  Age: 45 Year
  Sex: Male

DRUGS (9)
  1. TYVASO (6 MICROGRAM, AEROSOL FOR INHALATION) (TREPROSTINIL SODIUM) [Suspect]
     Indication: PORTOPULMONARY HYPERTENSION
     Dosage: (54 UG)
     Route: 055
     Dates: start: 20100126
  2. ADCIRCA (TADALAFIL) [Concomitant]
  3. PROMACTA (ELTROMBOPAG) [Concomitant]
  4. CARVEDILOL [Concomitant]
  5. CENTRUM   /00554501/ [Concomitant]
  6. SPIRONOLACTONE [Concomitant]
  7. POTASSIUM CHLORIDE [Concomitant]
  8. FUROSEMIDE [Concomitant]
  9. XANAX (ALPRAZOLAM) [Concomitant]

REACTIONS (4)
  - Death [None]
  - Lung disorder [None]
  - Disease progression [None]
  - Liver disorder [None]
